FAERS Safety Report 5909125-2 (Version None)
Quarter: 2008Q4

REPORT INFORMATION
  Report Type: 
  Country: None (occurrence: None)
  Receive Date: 20081006
  Receipt Date: 20080925
  Transmission Date: 20090506
  Serious: Yes (Hospitalization, Disabling, Other)
  Sender: FDA-Public Use
  Company Number: US-ROCHE-87683

PATIENT
  Sex: Female
  Weight: 46.7 kg

DRUGS (5)
  1. ACCUTANE [Suspect]
     Indication: ACNE
     Route: 048
     Dates: start: 19950923, end: 19951003
  2. ACCUTANE [Suspect]
     Route: 048
     Dates: start: 19951004, end: 19951120
  3. PREVACID [Concomitant]
  4. PREDNISONE TAB [Concomitant]
     Dates: start: 19970424
  5. ORTHO TRI-CYCLEN [Concomitant]

REACTIONS (85)
  - ABDOMINAL PAIN [None]
  - ALOPECIA [None]
  - ANAEMIA [None]
  - ANGER [None]
  - ANHEDONIA [None]
  - ANOREXIA AND BULIMIA SYNDROME [None]
  - ANXIETY [None]
  - ARTHRALGIA [None]
  - ARTHRITIS [None]
  - ASTHENIA [None]
  - BACK PAIN [None]
  - BILIARY DYSKINESIA [None]
  - BLOOD PRESSURE ABNORMAL [None]
  - BONE PAIN [None]
  - CHEST PAIN [None]
  - CHOLECYSTITIS [None]
  - CHRONIC FATIGUE SYNDROME [None]
  - COLITIS ULCERATIVE [None]
  - CONFUSIONAL STATE [None]
  - CONTUSION [None]
  - CROHN'S DISEASE [None]
  - CRYING [None]
  - DECREASED APPETITE [None]
  - DEHYDRATION [None]
  - DEPRESSION [None]
  - DISTURBANCE IN ATTENTION [None]
  - DIZZINESS [None]
  - DRY SKIN [None]
  - EATING DISORDER [None]
  - EPISCLERITIS [None]
  - FEAR [None]
  - GALLBLADDER DISORDER [None]
  - GALLBLADDER OPERATION [None]
  - GASTRIC DISORDER [None]
  - GASTRITIS [None]
  - GASTROINTESTINAL DISORDER [None]
  - HAEMANGIOMA OF LIVER [None]
  - HAEMATOCHEZIA [None]
  - HEADACHE [None]
  - HEPATIC CYST [None]
  - HEPATIC STEATOSIS [None]
  - HOSTILITY [None]
  - HYPOCHROMIC ANAEMIA [None]
  - ILL-DEFINED DISORDER [None]
  - INCREASED APPETITE [None]
  - INCREASED TENDENCY TO BRUISE [None]
  - INFLAMMATORY BOWEL DISEASE [None]
  - INTERSTITIAL LUNG DISEASE [None]
  - JAW DISORDER [None]
  - MAJOR DEPRESSION [None]
  - MARITAL PROBLEM [None]
  - MEMORY IMPAIRMENT [None]
  - MITRAL VALVE INCOMPETENCE [None]
  - MOOD SWINGS [None]
  - MUSCULAR WEAKNESS [None]
  - MUSCULOSKELETAL PAIN [None]
  - MYALGIA [None]
  - NAIL DISORDER [None]
  - NAUSEA [None]
  - OBSESSIVE THOUGHTS [None]
  - OBSESSIVE-COMPULSIVE DISORDER [None]
  - OBSESSIVE-COMPULSIVE PERSONALITY DISORDER [None]
  - OEDEMA PERIPHERAL [None]
  - OPPORTUNISTIC INFECTION [None]
  - OPTIC DISC DRUSEN [None]
  - OVARIAN CYST [None]
  - PAIN [None]
  - PAIN IN EXTREMITY [None]
  - PANIC ATTACK [None]
  - POLYARTHRITIS [None]
  - POOR QUALITY SLEEP [None]
  - RADICULITIS BRACHIAL [None]
  - RASH [None]
  - RESTLESSNESS [None]
  - SELF ESTEEM DECREASED [None]
  - SUICIDAL IDEATION [None]
  - TENDONITIS [None]
  - THROMBOCYTOPENIA [None]
  - TONSILLECTOMY [None]
  - TREATMENT NONCOMPLIANCE [None]
  - ULCER [None]
  - UVEITIS [None]
  - VIRAL INFECTION [None]
  - VITAMIN D DEFICIENCY [None]
  - WEIGHT INCREASED [None]
